FAERS Safety Report 9387499 (Version 1)
Quarter: 2013Q3

REPORT INFORMATION
  Report Type: Report from Study
  Country: CA (occurrence: CA)
  Receive Date: 20130708
  Receipt Date: 20130708
  Transmission Date: 20140515
  Serious: Yes (Other)
  Sender: FDA-Public Use
  Company Number: CA-JNJFOC-20130702264

PATIENT
  Age: 27 Year
  Sex: Male
  Weight: 76.6 kg

DRUGS (1)
  1. REMICADE [Suspect]
     Indication: COLITIS ULCERATIVE
     Dosage: 500 MG ONCE EVERY 7-8 WEEKS
     Route: 042
     Dates: start: 201112

REACTIONS (2)
  - Back pain [Unknown]
  - Road traffic accident [Unknown]
